FAERS Safety Report 18103485 (Version 6)
Quarter: 2021Q1

REPORT INFORMATION
  Report Type: Spontaneous
  Country: JP (occurrence: JP)
  Receive Date: 20200803
  Receipt Date: 20210205
  Transmission Date: 20210419
  Serious: Yes (Death, Other)
  Sender: FDA-Public Use
  Company Number: JP-ABBVIE-20K-087-3508863-00

PATIENT
  Age: 82 Year
  Sex: Female
  Weight: 41 kg

DRUGS (9)
  1. DUODOPA [Suspect]
     Active Substance: CARBIDOPA\LEVODOPA
     Indication: PARKINSON^S DISEASE
     Dosage: MD: 3.1 ML?CD: 3.6 ML/HR?ED: 1 ML/UNIT
     Route: 050
     Dates: start: 20200330, end: 20200402
  2. DUODOPA [Suspect]
     Active Substance: CARBIDOPA\LEVODOPA
     Dosage: MD: 4 ML?CD: 3.6 ML/HR?ED: 1 ML/UNIT
     Route: 050
     Dates: start: 20200403, end: 20200415
  3. DUODOPA [Suspect]
     Active Substance: CARBIDOPA\LEVODOPA
     Dosage: MD: 4 ML?CD: 3.2 ML/HR?ED: 1 ML/UNIT
     Route: 050
     Dates: start: 20200625, end: 20200625
  4. DUODOPA [Suspect]
     Active Substance: CARBIDOPA\LEVODOPA
     Dosage: MD: 4 ML?CD: 3.1 ML/HR?ED: 1 ML/UNIT
     Route: 050
     Dates: start: 20200626, end: 20200701
  5. DUODOPA [Suspect]
     Active Substance: CARBIDOPA\LEVODOPA
     Dosage: MD: 4 ML?CD: 2.9 ML/HR?ED: 1 ML/UNIT
     Route: 050
     Dates: start: 20200702, end: 20200724
  6. ROTIGOTINE [Concomitant]
     Active Substance: ROTIGOTINE
     Indication: DYSKINESIA
     Route: 062
     Dates: end: 20200409
  7. DUODOPA [Suspect]
     Active Substance: CARBIDOPA\LEVODOPA
     Dosage: MD: 4 ML?CD: 3.4 ML/HR?ED: 1 ML/UNIT
     Route: 050
     Dates: start: 20200416, end: 20200624
  8. ROTIGOTINE [Concomitant]
     Active Substance: ROTIGOTINE
     Indication: PRODUCT USED FOR UNKNOWN INDICATION
  9. GOREISAN [Concomitant]
     Active Substance: HERBALS
     Indication: OEDEMA
     Dosage: EXTRACT
     Route: 048
     Dates: start: 20200523

REACTIONS (8)
  - Altered state of consciousness [Unknown]
  - Dyskinesia [Unknown]
  - Pneumonia aspiration [Recovering/Resolving]
  - Hypokalaemia [Not Recovered/Not Resolved]
  - Hepatic failure [Fatal]
  - Cardiac failure congestive [Recovered/Resolved]
  - Dystonia [Unknown]
  - Hepatic atrophy [Fatal]

NARRATIVE: CASE EVENT DATE: 2020
